FAERS Safety Report 24904220 (Version 1)
Quarter: 2025Q1

REPORT INFORMATION
  Report Type: Spontaneous
  Country: US (occurrence: None)
  Receive Date: 20250129
  Receipt Date: 20250129
  Transmission Date: 20250408
  Serious: Yes (Hospitalization)
  Sender: FDA-CTU
  Company Number: None

PATIENT
  Sex: Female

DRUGS (2)
  1. SOMATULINE DEPOT [Suspect]
     Active Substance: LANREOTIDE ACETATE
     Indication: Pancreatic disorder
     Dosage: FREQUENCY : MONTHLY;?
     Route: 042
     Dates: start: 202408
  2. TYMLOS PF PEN [Concomitant]

REACTIONS (1)
  - Hospitalisation [None]
